FAERS Safety Report 17253033 (Version 1)
Quarter: 2019Q4

REPORT INFORMATION
  Report Type: Spontaneous
  Country: US (occurrence: US)
  Receive Date: 20191216
  Receipt Date: 20191216
  Transmission Date: 20200122
  Serious: No
  Sender: FDA-Public Use
  Company Number: None

PATIENT
  Age: 60 Year
  Sex: Female
  Weight: 74.84 kg

DRUGS (1)
  1. LETROZOLE. [Suspect]
     Active Substance: LETROZOLE
     Indication: OESTROGEN RECEPTOR POSITIVE BREAST CANCER
     Dosage: ?          QUANTITY:2.5 MG MILLIGRAM(S);?
     Route: 048
     Dates: start: 20190320, end: 20191113

REACTIONS (8)
  - Pain [None]
  - Drug ineffective [None]
  - Pain in extremity [None]
  - Loss of personal independence in daily activities [None]
  - Peripheral swelling [None]
  - Arthralgia [None]
  - Musculoskeletal stiffness [None]
  - Insomnia [None]

NARRATIVE: CASE EVENT DATE: 20190405
